FAERS Safety Report 18971525 (Version 2)
Quarter: 2021Q1

REPORT INFORMATION
  Report Type: Spontaneous
  Country: US (occurrence: US)
  Receive Date: 20210304
  Receipt Date: 20210311
  Transmission Date: 20210420
  Serious: Yes (Hospitalization, Other)
  Sender: FDA-Public Use
  Company Number: US-AUROBINDO-AUR-APL-2021-008338

PATIENT
  Age: 19 Year
  Sex: Male

DRUGS (4)
  1. METOPROLOL. [Concomitant]
     Active Substance: METOPROLOL
     Indication: HYPERTENSION
     Dosage: UNK
     Route: 065
  2. SEMAGLUTIDE [Concomitant]
     Active Substance: SEMAGLUTIDE
     Indication: TYPE 2 DIABETES MELLITUS
     Dosage: UNK
     Route: 065
  3. METFORMIN [Suspect]
     Active Substance: METFORMIN HYDROCHLORIDE
     Indication: TYPE 2 DIABETES MELLITUS
     Dosage: UNK
     Route: 065
  4. NITROUS OXIDE. [Suspect]
     Active Substance: NITROUS OXIDE
     Indication: PRODUCT USED FOR UNKNOWN INDICATION
     Dosage: UNK
     Route: 016

REACTIONS (9)
  - Condition aggravated [Not Recovered/Not Resolved]
  - Gait inability [Recovering/Resolving]
  - Substance use [Unknown]
  - Decreased vibratory sense [Recovering/Resolving]
  - Muscular weakness [Not Recovered/Not Resolved]
  - Exercise tolerance decreased [Recovering/Resolving]
  - Drug abuse [Unknown]
  - Areflexia [Recovering/Resolving]
  - Neuropathy vitamin B12 deficiency [Recovering/Resolving]
